FAERS Safety Report 7825117-0 (Version None)
Quarter: 2011Q4

REPORT INFORMATION
  Report Type: 
  Country: None (occurrence: None)
  Receive Date: 20111018
  Receipt Date: 20111018
  Transmission Date: 20120403
  Serious: Yes (Death)
  Sender: FDA-Public Use
  Company Number: None

PATIENT
  Sex: Male
  Weight: 77 kg

DRUGS (1)
  1. PROFILNINE SD [Suspect]
     Indication: INTERNATIONAL NORMALISED RATIO INCREASED
     Dosage: 3900 IU X1 IV
     Route: 042
     Dates: start: 20110927

REACTIONS (4)
  - PLATELET COUNT DECREASED [None]
  - HAEMORRHAGE [None]
  - CARDIO-RESPIRATORY ARREST [None]
  - DISSEMINATED INTRAVASCULAR COAGULATION [None]
